FAERS Safety Report 9461894 (Version 1)
Quarter: 2013Q3

REPORT INFORMATION
  Report Type: Spontaneous
  Country: US (occurrence: None)
  Receive Date: 20130815
  Receipt Date: 20130815
  Transmission Date: 20140515
  Serious: No
  Sender: FDA-Public Use
  Company Number: None

PATIENT
  Age: 58 Year
  Sex: Female
  Weight: 71.22 kg

DRUGS (1)
  1. GAMMAGARD [Suspect]
     Route: 042
     Dates: start: 20130806, end: 20130809

REACTIONS (1)
  - Skin disorder [None]
